FAERS Safety Report 5839847-3 (Version None)
Quarter: 2008Q3

REPORT INFORMATION
  Report Type: 
  Country: None (occurrence: None)
  Receive Date: 20080811
  Receipt Date: 20080728
  Transmission Date: 20090109
  Serious: Yes (Other)
  Sender: FDA-Public Use
  Company Number: JP-ELI_LILLY_AND_COMPANY-JP200807005907

PATIENT
  Sex: Female
  Weight: 22.1 kg

DRUGS (4)
  1. HUMATROPE [Suspect]
     Indication: GROWTH HORMONE DEFICIENCY
     Dosage: 0.53 MG, 6/W
     Route: 058
     Dates: start: 20030929, end: 20040310
  2. HUMATROPE [Suspect]
     Dosage: 0.56 MG, 6/W
     Route: 058
     Dates: start: 20040311, end: 20050120
  3. HUMATROPE [Suspect]
     Dosage: 0.63 MG, 6/W
     Route: 058
     Dates: start: 20050121, end: 20050823
  4. HUMATROPE [Suspect]
     Dosage: 0.6 MG, 6/W
     Route: 058
     Dates: start: 20050824

REACTIONS (1)
  - SCOLIOSIS [None]
